FAERS Safety Report 6697995-2 (Version None)
Quarter: 2010Q2

REPORT INFORMATION
  Report Type: 
  Country: None (occurrence: None)
  Receive Date: 20100427
  Receipt Date: 20100420
  Transmission Date: 20101027
  Serious: Yes (Other)
  Sender: FDA-Public Use
  Company Number: AU-JNJFOC-20100405967

PATIENT
  Age: 53 Year
  Sex: Female
  Weight: 100 kg

DRUGS (4)
  1. RISPERDAL [Suspect]
     Indication: PSYCHOTIC DISORDER
     Route: 048
  2. ANGIOTENSIN-CONVERTING ENZYME INHIBITORS [Concomitant]
     Indication: ESSENTIAL HYPERTENSION
     Route: 048
  3. DOTHEP [Concomitant]
     Route: 048
  4. ENDONE [Concomitant]
     Indication: PAIN
     Route: 048

REACTIONS (3)
  - BALANCE DISORDER [None]
  - DIZZINESS [None]
  - HYPERTENSION [None]
